FAERS Safety Report 25523072 (Version 1)
Quarter: 2025Q3

REPORT INFORMATION
  Report Type: Spontaneous
  Country: AU (occurrence: AU)
  Receive Date: 20250707
  Receipt Date: 20250707
  Transmission Date: 20251021
  Serious: Yes (Other)
  Sender: SANDOZ
  Company Number: AU-002147023-NVSC2025AU104129

PATIENT
  Age: 56 Year
  Sex: Female

DRUGS (27)
  1. ALPELISIB [Suspect]
     Active Substance: ALPELISIB
     Route: 048
     Dates: start: 20250206
  2. ALPELISIB [Suspect]
     Active Substance: ALPELISIB
     Indication: Breast cancer
     Dosage: 300 MG, QD (FOR 4 WEEKS (28 DAYS))
     Route: 048
     Dates: start: 20250109
  3. FULVESTRANT [Suspect]
     Active Substance: FULVESTRANT
     Indication: Breast cancer
     Route: 030
     Dates: start: 20250109
  4. CEFTRIAXONE [Concomitant]
     Active Substance: CEFTRIAXONE
     Indication: Respiratory syncytial virus infection
     Route: 042
  5. POTASSIUM CHLORIDE [Concomitant]
     Active Substance: POTASSIUM CHLORIDE
     Indication: Product used for unknown indication
     Route: 065
  6. CLARITIN [Concomitant]
     Active Substance: LORATADINE
     Indication: Skin irritation
     Route: 065
  7. CLARITIN [Concomitant]
     Active Substance: LORATADINE
     Indication: Nasopharyngitis
  8. BETAMETHASONE DIPROPIONATE [Concomitant]
     Active Substance: BETAMETHASONE DIPROPIONATE
     Indication: Product used for unknown indication
     Route: 065
  9. Fitline activize oxyplus [Concomitant]
     Indication: Product used for unknown indication
     Route: 065
  10. Fitline antioxy [Concomitant]
     Indication: Prophylaxis
     Route: 065
  11. Fitline restorate [Concomitant]
     Indication: Product used for unknown indication
     Route: 065
  12. INFLUENZA VIRUS VACCINE [Concomitant]
     Active Substance: INFLUENZA VIRUS VACCINE
     Indication: Influenza like illness
     Route: 065
  13. GAVISCON [Concomitant]
     Active Substance: ALUMINUM HYDROXIDE\MAGNESIUM CARBONATE
     Indication: Reflux gastritis
     Route: 048
  14. CALCIUM CHLORIDE\POTASSIUM CHLORIDE\SODIUM CHLORIDE\SODIUM LACTATE [Concomitant]
     Active Substance: CALCIUM CHLORIDE\POTASSIUM CHLORIDE\SODIUM CHLORIDE\SODIUM LACTATE
     Indication: Product used for unknown indication
     Dosage: 80 ML, QD
     Route: 042
  15. HYDROCORTISONE [Concomitant]
     Active Substance: HYDROCORTISONE
     Indication: Rash
     Dosage: 100 MG, QD
     Route: 042
  16. LOPERAMIDE HYDROCHLORIDE [Concomitant]
     Active Substance: LOPERAMIDE HYDROCHLORIDE
     Indication: Diarrhoea
     Route: 065
  17. LORATADINE [Concomitant]
     Active Substance: LORATADINE
     Indication: Rash
     Route: 048
  18. METOCLOPRAMIDE [Concomitant]
     Active Substance: METOCLOPRAMIDE
     Indication: Reflux gastritis
     Dosage: 10 MG, TID
     Route: 048
  19. MORPHINE [Concomitant]
     Active Substance: MORPHINE
     Indication: Pain
     Route: 058
  20. SODIUM CHLORIDE [Concomitant]
     Active Substance: SODIUM CHLORIDE
     Indication: Product used for unknown indication
     Route: 042
  21. ONDANSETRON [Concomitant]
     Active Substance: ONDANSETRON
     Indication: Gastrooesophageal reflux disease
     Dosage: 4 MG, QID
     Route: 042
  22. PANADOL [Concomitant]
     Active Substance: ACETAMINOPHEN
     Indication: Arthralgia
     Route: 065
  23. PANTOPRAZOLE [Concomitant]
     Active Substance: PANTOPRAZOLE
     Indication: Reflux gastritis
     Route: 048
  24. ACETAMINOPHEN [Concomitant]
     Active Substance: ACETAMINOPHEN
     Indication: Pain
     Route: 042
  25. UNSPECIFIED INGREDIENT [Concomitant]
     Active Substance: UNSPECIFIED INGREDIENT
     Indication: Product used for unknown indication
     Dosage: 500 MG, BID
     Route: 048
  26. Rixalt [Concomitant]
     Indication: Headache
     Route: 065
  27. SODIUM BICARBONATE [Concomitant]
     Active Substance: SODIUM BICARBONATE
     Indication: Rash
     Route: 065

REACTIONS (2)
  - Non-cardiac chest pain [Unknown]
  - Urticaria [Unknown]

NARRATIVE: CASE EVENT DATE: 20250119
